FAERS Safety Report 6406048-X (Version None)
Quarter: 2009Q4

REPORT INFORMATION
  Report Type: 
  Country: None (occurrence: None)
  Receive Date: 20091014
  Receipt Date: 20090930
  Transmission Date: 20100525
  Serious: Yes (Death, Hospitalization)
  Sender: FDA-Public Use
  Company Number: 2009AC000042

PATIENT
  Age: 45 Year
  Sex: Male

DRUGS (9)
  1. DIGOXIN [Suspect]
     Dosage: 0.25 MG; QD; PO
     Route: 048
  2. HYDRALAZINE HCL [Concomitant]
  3. METOPROLOL [Concomitant]
  4. LISINOPRIL [Concomitant]
  5. POTASSIUM CHLORIDE [Concomitant]
  6. METFORMIN HCL [Concomitant]
  7. FUROSEMIDE [Concomitant]
  8. ACIPHEX [Concomitant]
  9. CYPROHEPTAD [Concomitant]

REACTIONS (3)
  - ECONOMIC PROBLEM [None]
  - MULTIPLE INJURIES [None]
  - SURGERY [None]
